FAERS Safety Report 24806715 (Version 1)
Quarter: 2025Q1

REPORT INFORMATION
  Report Type: Spontaneous
  Country: CA (occurrence: CA)
  Receive Date: 20250104
  Receipt Date: 20250104
  Transmission Date: 20250408
  Serious: Yes (Death, Other)
  Sender: CHATTEM
  Company Number: CA-SA-2024SA377111

PATIENT
  Age: 43 Year
  Sex: Female
  Weight: 96 kg

DRUGS (8)
  1. FOLIC ACID [Suspect]
     Active Substance: FOLIC ACID
     Indication: Rheumatoid arthritis
  2. FOLIC ACID [Suspect]
     Active Substance: FOLIC ACID
  3. FOLIC ACID [Suspect]
     Active Substance: FOLIC ACID
  4. FOLIC ACID [Suspect]
     Active Substance: FOLIC ACID
     Route: 048
  5. DICLOFENAC SODIUM [Suspect]
     Active Substance: DICLOFENAC SODIUM
     Indication: Product used for unknown indication
  6. MAGNESIUM [Suspect]
     Active Substance: MAGNESIUM
     Indication: Product used for unknown indication
  7. PANTOPRAZOLE SODIUM [Suspect]
     Active Substance: PANTOPRAZOLE SODIUM
     Indication: Product used for unknown indication
  8. TRIAMCINOLONE [Suspect]
     Active Substance: TRIAMCINOLONE
     Indication: Product used for unknown indication

REACTIONS (2)
  - Abdominal discomfort [Fatal]
  - Maternal exposure during pregnancy [Fatal]
